FAERS Safety Report 9068542 (Version 1)
Quarter: 2013Q1

REPORT INFORMATION
  Report Type: Spontaneous
  Country: US (occurrence: US)
  Receive Date: 20130206
  Receipt Date: 20130206
  Transmission Date: 20140127
  Serious: Yes (Death, Hospitalization)
  Sender: FDA-Public Use
  Company Number: PHHY2013US010692

PATIENT
  Age: 63 Year
  Sex: Female
  Weight: 113 kg

DRUGS (4)
  1. CLINDAMYCIN [Suspect]
     Indication: ARTHRITIS INFECTIVE
     Route: 048
  2. LEVOTHYROXINE [Concomitant]
  3. ATORVASTATIN [Concomitant]
  4. ACETAMINOPHEN W/HYDROCODONE [Concomitant]

REACTIONS (19)
  - Drug reaction with eosinophilia and systemic symptoms [Fatal]
  - Erythema [Fatal]
  - Pruritus [Fatal]
  - Rash [Fatal]
  - Papule [Fatal]
  - Blister [Fatal]
  - Skin exfoliation [Fatal]
  - Nausea [Fatal]
  - Vomiting [Fatal]
  - Renal failure acute [Fatal]
  - Urine output decreased [Fatal]
  - Eosinophilia [Fatal]
  - Pancreatitis [Fatal]
  - Lymphadenopathy [Fatal]
  - Jaundice [Fatal]
  - Hepatic function abnormal [Fatal]
  - Hypoxia [Fatal]
  - Multi-organ failure [Unknown]
  - Metabolic acidosis [Unknown]
